FAERS Safety Report 16840980 (Version 1)
Quarter: 2019Q3

REPORT INFORMATION
  Report Type: Report from Study
  Country: CA (occurrence: CA)
  Receive Date: 20190923
  Receipt Date: 20190923
  Transmission Date: 20191005
  Serious: Yes (Other)
  Sender: FDA-Public Use
  Company Number: CA-MYLANLABS-2019M1081409

PATIENT
  Age: 63 Year
  Sex: Female

DRUGS (2)
  1. CLOZAPINE. [Suspect]
     Active Substance: CLOZAPINE
     Indication: PRODUCT USED FOR UNKNOWN INDICATION
     Dosage: UNK
     Dates: start: 20190812, end: 20190817
  2. CLOZAPINE. [Suspect]
     Active Substance: CLOZAPINE
     Dosage: UNK
     Dates: start: 20190830, end: 20190904

REACTIONS (5)
  - Ileus [Unknown]
  - Neuroleptic malignant syndrome [Unknown]
  - Pancreatitis [Unknown]
  - Lipase increased [Unknown]
  - Hyperthermia [Unknown]

NARRATIVE: CASE EVENT DATE: 2019
